FAERS Safety Report 15964357 (Version 1)
Quarter: 2019Q1

REPORT INFORMATION
  Report Type: Spontaneous
  Country: FR (occurrence: FR)
  Receive Date: 20190215
  Receipt Date: 20190215
  Transmission Date: 20190417
  Serious: Yes (Hospitalization, Other)
  Sender: FDA-Public Use
  Company Number: FR-AUROBINDO-AUR-APL-2019-008214

PATIENT

DRUGS (9)
  1. INEXIUM [Suspect]
     Active Substance: ESOMEPRAZOLE
     Indication: PRODUCT USED FOR UNKNOWN INDICATION
     Dosage: UNK
     Route: 048
     Dates: start: 20160708, end: 20160826
  2. AMOXICILLIN. [Suspect]
     Active Substance: AMOXICILLIN
     Indication: THERAPEUTIC PROCEDURE
     Dosage: UNK
     Route: 048
     Dates: start: 20160602, end: 20160826
  3. CLAVULANIC ACID [Suspect]
     Active Substance: CLAVULANIC ACID
     Indication: THERAPEUTIC PROCEDURE
     Dosage: UNK
     Route: 048
     Dates: start: 20160602, end: 20160826
  4. LASILIX FAIBLE [Suspect]
     Active Substance: FUROSEMIDE
     Indication: PRODUCT USED FOR UNKNOWN INDICATION
     Dosage: UNK
     Route: 048
     Dates: start: 20160708, end: 20160826
  5. DECAPEPTYL [Suspect]
     Active Substance: TRIPTORELIN
     Indication: ANGIOMYXOMA
     Dosage: 4 DOSAGE FORM
     Route: 065
  6. EBASTINE [Suspect]
     Active Substance: EBASTINE
     Indication: URTICARIA
     Dosage: UNK
     Route: 048
     Dates: start: 20160602, end: 20160820
  7. PAROXETINE. [Concomitant]
     Active Substance: PAROXETINE
     Indication: PRODUCT USED FOR UNKNOWN INDICATION
     Dosage: UNK
     Route: 065
  8. ATARAX [Suspect]
     Active Substance: HYDROXYZINE HYDROCHLORIDE
     Indication: PRODUCT USED FOR UNKNOWN INDICATION
     Dosage: UNK
     Route: 065
     Dates: start: 201606, end: 20160826
  9. LOSARTAN POTASSIUM. [Concomitant]
     Active Substance: LOSARTAN POTASSIUM
     Indication: PRODUCT USED FOR UNKNOWN INDICATION
     Dosage: UNK
     Route: 065

REACTIONS (1)
  - Drug reaction with eosinophilia and systemic symptoms [Recovered/Resolved]

NARRATIVE: CASE EVENT DATE: 20160820
